FAERS Safety Report 7465540-X (Version None)
Quarter: 2011Q2

REPORT INFORMATION
  Report Type: 
  Country: None (occurrence: None)
  Receive Date: 20110509
  Receipt Date: 20110429
  Transmission Date: 20111010
  Serious: No
  Sender: FDA-Public Use
  Company Number: BR-ROCHE-774452

PATIENT
  Sex: Male
  Weight: 3.7 kg

DRUGS (2)
  1. ISOTRETINOIN [Suspect]
     Indication: ACNE
     Dosage: THERAPY LASTED SIX MONTHS
     Route: 064
     Dates: start: 20040101
  2. ISOTRETINOIN [Suspect]
     Route: 064
     Dates: start: 20050101

REACTIONS (2)
  - NO ADVERSE EVENT [None]
  - NORMAL NEWBORN [None]
